FAERS Safety Report 13562318 (Version 1)
Quarter: 2017Q2

REPORT INFORMATION
  Report Type: Spontaneous
  Country: US (occurrence: US)
  Receive Date: 20170519
  Receipt Date: 20170519
  Transmission Date: 20170830
  Serious: No
  Sender: FDA-Public Use
  Company Number: US-TEVA-739426ACC

PATIENT
  Sex: Male

DRUGS (8)
  1. MEZAVANT [Concomitant]
     Active Substance: MESALAMINE
  2. VYVANSE [Concomitant]
     Active Substance: LISDEXAMFETAMINE DIMESYLATE
     Dates: start: 201512
  3. ASACOL 800 [Concomitant]
  4. PREDNISONE. [Concomitant]
     Active Substance: PREDNISONE
  5. SULFASALAZINE. [Suspect]
     Active Substance: SULFASALAZINE
     Dosage: 4000 MILLIGRAM DAILY;
     Route: 048
     Dates: start: 201411
  6. AZATHIOPRINE. [Concomitant]
     Active Substance: AZATHIOPRINE
  7. INFLECTRA [Concomitant]
     Active Substance: INFLIXIMAB-DYYB
  8. METHOTREXATE. [Concomitant]
     Active Substance: METHOTREXATE

REACTIONS (1)
  - Therapeutic response decreased [Unknown]
